FAERS Safety Report 14938210 (Version 1)
Quarter: 2018Q2

REPORT INFORMATION
  Report Type: Report from Study
  Country: MX (occurrence: MX)
  Receive Date: 20180525
  Receipt Date: 20180525
  Transmission Date: 20180711
  Serious: Yes (Death)
  Sender: FDA-Public Use
  Company Number: PHHY2018MX007249

PATIENT
  Sex: Female

DRUGS (1)
  1. EXELON PATCH [Suspect]
     Active Substance: RIVASTIGMINE
     Indication: DEMENTIA ALZHEIMER^S TYPE
     Dosage: 0.75 DF (9.5 MG), QD (PATCH 10 (CM2)
     Route: 062

REACTIONS (3)
  - Drug prescribing error [Unknown]
  - Wrong technique in product usage process [Unknown]
  - Pneumonia [Fatal]
